FAERS Safety Report 8140959-2 (Version None)
Quarter: 2012Q1

REPORT INFORMATION
  Report Type: 
  Country: None (occurrence: None)
  Receive Date: 20120216
  Receipt Date: 20120208
  Transmission Date: 20120608
  Serious: Yes (Disabling, Other)
  Sender: FDA-Public Use
  Company Number: PHHY2012DE011362

PATIENT
  Age: 10 Year
  Sex: Male

DRUGS (4)
  1. PREDNISONE TAB [Suspect]
     Indication: ACUTE LYMPHOCYTIC LEUKAEMIA
  2. METHOTREXATE [Suspect]
     Dosage: 5000 MG/M2, UNK
  3. DEXAMETHASONE [Suspect]
     Indication: ACUTE LYMPHOCYTIC LEUKAEMIA
     Dosage: 10 MG/M2, UNK
  4. ASPARAGINASE [Suspect]
     Indication: ACUTE LYMPHOCYTIC LEUKAEMIA

REACTIONS (6)
  - CEREBRAL VENOUS THROMBOSIS [None]
  - OSTEOPENIA [None]
  - CONDITION AGGRAVATED [None]
  - HEPATOTOXICITY [None]
  - CYSTIC FIBROSIS [None]
  - BACK PAIN [None]
